FAERS Safety Report 5124861-6 (Version None)
Quarter: 2006Q4

REPORT INFORMATION
  Report Type: 
  Country: None (occurrence: None)
  Receive Date: 20061011
  Receipt Date: 20061010
  Transmission Date: 20070319
  Serious: Yes (Hospitalization)
  Sender: FDA-Public Use
  Company Number: 200615056EU

PATIENT
  Sex: Female

DRUGS (2)
  1. NICODERM [Suspect]
     Indication: DRUG USE FOR UNKNOWN INDICATION
     Dosage: 4MG UNKNOWN
     Route: 062
     Dates: start: 20050101
  2. ENALAPRIL MALEATE [Concomitant]
     Dosage: 10MG UNKNOWN
     Dates: start: 20040101

REACTIONS (3)
  - BLOOD PRESSURE INCREASED [None]
  - CONFUSIONAL STATE [None]
  - DYSPNOEA [None]
